FAERS Safety Report 7180085-2 (Version None)
Quarter: 2010Q4

REPORT INFORMATION
  Report Type: 
  Country: None (occurrence: None)
  Receive Date: 20101221
  Receipt Date: 20101215
  Transmission Date: 20110411
  Serious: Yes (Other)
  Sender: FDA-Public Use
  Company Number: US-JNJCH-2010016512

PATIENT
  Age: 48 Year
  Sex: Female
  Weight: 86.2 kg

DRUGS (1)
  1. BENGAY PAIN RELIEVING PATCH [Suspect]
     Indication: PAIN
     Dosage: TEXT:ONE PATCH ONCE
     Route: 061
     Dates: start: 20100429, end: 20100429

REACTIONS (4)
  - BURNS SECOND DEGREE [None]
  - INJURY [None]
  - PAIN [None]
  - STRESS [None]
